FAERS Safety Report 21519766 (Version 1)
Quarter: 2022Q4

REPORT INFORMATION
  Report Type: Spontaneous
  Country: US (occurrence: None)
  Receive Date: 20221027
  Receipt Date: 20221027
  Transmission Date: 20230113
  Serious: Yes (Hospitalization)
  Sender: FDA-Public Use
  Company Number: None

PATIENT
  Age: 54 Year
  Sex: Male
  Weight: 83 kg

DRUGS (1)
  1. CHLORTHALIDONE [Suspect]
     Active Substance: CHLORTHALIDONE
     Indication: Hypertension
     Dosage: 12.5 M,G EVERY DAY PO
     Route: 048
     Dates: start: 20220707, end: 20221006

REACTIONS (2)
  - Hypokalaemia [None]
  - Acute kidney injury [None]

NARRATIVE: CASE EVENT DATE: 20221006
